FAERS Safety Report 22223755 (Version 1)
Quarter: 2023Q2

REPORT INFORMATION
  Report Type: Spontaneous
  Country: FR (occurrence: FR)
  Receive Date: 20230418
  Receipt Date: 20230418
  Transmission Date: 20230721
  Serious: Yes (Hospitalization)
  Sender: FDA-Public Use
  Company Number: FR-DENTSPLY-2023SCDP000116

PATIENT
  Age: 20 Year
  Sex: Female

DRUGS (8)
  1. EPINEPHRINE BITARTRATE\LIDOCAINE HYDROCHLORIDE [Suspect]
     Active Substance: EPINEPHRINE BITARTRATE\LIDOCAINE HYDROCHLORIDE
     Indication: Local anaesthesia
     Dosage: UNK
     Route: 058
     Dates: start: 20230323, end: 20230323
  2. ACETAMINOPHEN [Suspect]
     Active Substance: ACETAMINOPHEN
     Indication: Analgesic therapy
     Dosage: 1 GRAM TOTAL
     Route: 042
     Dates: start: 20230323, end: 20230323
  3. ACUPAN [Suspect]
     Active Substance: NEFOPAM HYDROCHLORIDE
     Indication: Analgesic therapy
     Dosage: 20 MILLIGRAM TOTAL ACUPAN INJECTABLE SOLUTION
     Route: 042
     Dates: start: 20230323, end: 20230323
  4. PROPOFOL [Suspect]
     Active Substance: PROPOFOL
     Indication: General anaesthesia
     Dosage: 300 MILLIGRAM TOTAL
     Route: 042
     Dates: start: 20230323, end: 20230323
  5. METHYLPREDNISOLONE [Suspect]
     Active Substance: METHYLPREDNISOLONE
     Indication: Prophylaxis
     Dosage: 60 MILLIGRAM TOTAL
     Route: 042
     Dates: start: 20230323, end: 20230323
  6. MIDAZOLAM [Suspect]
     Active Substance: MIDAZOLAM
     Indication: General anaesthesia
     Dosage: 2 MILLIGRAM TOTAL
     Route: 042
     Dates: start: 20230323, end: 20230323
  7. SUFENTANIL [Suspect]
     Active Substance: SUFENTANIL
     Indication: General anaesthesia
     Dosage: 15 MICROGRAM TOTAL
     Route: 042
     Dates: start: 20230323, end: 20230323
  8. BETADINE [Suspect]
     Active Substance: POVIDONE-IODINE
     Indication: Infection prophylaxis
     Dosage: UNK
     Route: 003
     Dates: start: 20230323, end: 20230323

REACTIONS (1)
  - Lip oedema [Recovered/Resolved]

NARRATIVE: CASE EVENT DATE: 20230323
